FAERS Safety Report 6250312-4 (Version None)
Quarter: 2009Q2

REPORT INFORMATION
  Report Type: 
  Country: None (occurrence: None)
  Receive Date: 20090630
  Receipt Date: 20090619
  Transmission Date: 20091009
  Serious: Yes (Other)
  Sender: FDA-Public Use
  Company Number: GB-RANBAXY-2009RR-25165

PATIENT
  Age: 43 Year
  Sex: Female

DRUGS (3)
  1. TOPIRAMATE [Suspect]
     Indication: MIGRAINE PROPHYLAXIS
     Dosage: 25 MG, QD
  2. PROPRANOLOL HYDROCHLORIDE [Concomitant]
  3. AMITRIPTYLINE [Concomitant]

REACTIONS (1)
  - RETINAL DETACHMENT [None]
